FAERS Safety Report 10208055 (Version 1)
Quarter: 2014Q2

REPORT INFORMATION
  Report Type: Spontaneous
  Country: US (occurrence: None)
  Receive Date: 20140528
  Receipt Date: 20140528
  Transmission Date: 20141212
  Serious: Yes (Other)
  Sender: FDA-Public Use
  Company Number: None

PATIENT
  Age: 64 Year
  Sex: Male
  Weight: 87.09 kg

DRUGS (5)
  1. METFORMIN [Suspect]
     Indication: DIABETES MELLITUS
     Dosage: 1,000?2SAY?TWICE DAILY?BY MOUTH
     Route: 048
     Dates: start: 2006, end: 201402
  2. WELCHOL [Concomitant]
  3. ASPIRIN [Concomitant]
  4. B/P MACHINE DIABETIC MACHINE [Concomitant]
  5. VIT D [Concomitant]

REACTIONS (1)
  - Renal injury [None]
